FAERS Safety Report 10336688 (Version 2)
Quarter: 2014Q3

REPORT INFORMATION
  Report Type: Spontaneous
  Country: US (occurrence: US)
  Receive Date: 20140723
  Receipt Date: 20140723
  Transmission Date: 20150326
  Serious: No
  Sender: FDA-Public Use
  Company Number: US-GALDERMA-US14001726

PATIENT
  Age: 23 Year
  Sex: Female

DRUGS (3)
  1. ORACEA [Suspect]
     Active Substance: DOXYCYCLINE
     Indication: ROSACEA
     Dosage: 40 MG
     Route: 048
     Dates: start: 201401, end: 201402
  2. LOW OGESTREL 28^S [Concomitant]
     Route: 048
  3. UNKNOWN MOISTURIZER FOR SENSITIVE SKIN [Concomitant]
     Indication: DRY SKIN PROPHYLAXIS
     Route: 061
     Dates: end: 20140501

REACTIONS (4)
  - Malaise [Recovered/Resolved]
  - Abdominal discomfort [Recovered/Resolved]
  - Vomiting [Recovered/Resolved]
  - Drug ineffective [Recovered/Resolved]

NARRATIVE: CASE EVENT DATE: 201402
